FAERS Safety Report 4571623-4 (Version None)
Quarter: 2005Q1

REPORT INFORMATION
  Report Type: 
  Country: None (occurrence: None)
  Receive Date: 20050207
  Receipt Date: 20050128
  Transmission Date: 20050727
  Serious: Yes (Other)
  Sender: FDA-Public Use
  Company Number: 200510714US

PATIENT
  Age: 52 Year
  Sex: Female

DRUGS (3)
  1. KETEK [Suspect]
     Indication: CHRONIC SINUSITIS
     Dosage: DOSE: UNK
  2. CRESTOR [Concomitant]
  3. DIOVAN [Concomitant]

REACTIONS (5)
  - AUTOIMMUNE DISORDER [None]
  - HEPATITIS [None]
  - RED BLOOD CELL COUNT DECREASED [None]
  - RED BLOOD CELL SEDIMENTATION RATE INCREASED [None]
  - TEMPORAL ARTERITIS [None]
